FAERS Safety Report 24233694 (Version 1)
Quarter: 2024Q3

REPORT INFORMATION
  Report Type: Report from Study
  Country: ES (occurrence: ES)
  Receive Date: 20240821
  Receipt Date: 20240821
  Transmission Date: 20241016
  Serious: Yes (Death)
  Sender: VERITY PHARMACEUTICALS
  Company Number: ES-VER-202400007

PATIENT
  Age: 83 Year
  Sex: Male
  Weight: 78 kg

DRUGS (7)
  1. CARBOXYMALTOSE [Concomitant]
     Indication: Blood iron decreased
     Dosage: 1 GRAM(S), ONCE.
     Route: 042
     Dates: start: 20231110, end: 20231110
  2. LEVOTHYROXINE SODIUM [Concomitant]
     Active Substance: LEVOTHYROXINE SODIUM
     Indication: Hyperthyroidism
     Dosage: 25 MILLIGRAM(S), IN 1 DAY
     Route: 048
     Dates: start: 20230110
  3. DIAZEPAM [Concomitant]
     Active Substance: DIAZEPAM
     Indication: Anxiety
     Dosage: 5 MILLIGRAM(S)
     Route: 048
     Dates: start: 20110518
  4. METAMIZOLE [Concomitant]
     Active Substance: METAMIZOLE
     Indication: Pain
     Dosage: 25 MICROGRAM(S)
     Route: 048
     Dates: start: 20220810
  5. SIMVASTATIN [Concomitant]
     Active Substance: SIMVASTATIN
     Indication: Hypercholesterolaemia
     Dosage: 20 MILLIGRAM(S), IN 1 DAY
     Route: 048
     Dates: start: 20110518
  6. TRIPTORELIN [Suspect]
     Active Substance: TRIPTORELIN
     Indication: Prostate cancer
     Dosage: 22.5 MILLIGRAM(S), IN 24 WEEK, POWDER AND SOLVENT FOR SUSPENSION FOR INJECTION, RIGHT ARM.
     Route: 058
     Dates: start: 20230511, end: 20230511
  7. TRIPTORELIN [Suspect]
     Active Substance: TRIPTORELIN
     Indication: Prostate cancer
     Dosage: 22.5 MILLIGRAM(S), IN 24 WEEK, POWDER AND SOLVENT FOR SUSPENSION FOR INJECTION, RIGHT ARM.
     Route: 058
     Dates: start: 20231026, end: 20231026

REACTIONS (1)
  - Disease progression [Fatal]

NARRATIVE: CASE EVENT DATE: 20240214
